FAERS Safety Report 9018820 (Version 1)
Quarter: 2013Q1

REPORT INFORMATION
  Report Type: Spontaneous
  Country: BR (occurrence: BR)
  Receive Date: 20130118
  Receipt Date: 20130118
  Transmission Date: 20140127
  Serious: Yes (Other)
  Sender: FDA-Public Use
  Company Number: BR-AMGEN-BRASP2012030919

PATIENT
  Age: 51 Year
  Sex: Male
  Weight: 67 kg

DRUGS (5)
  1. ENBREL [Suspect]
     Indication: ANKYLOSING SPONDYLITIS
     Dosage: 25 MG, 2X/WEEK
     Route: 058
  2. ENBREL [Suspect]
     Dosage: 50 MG, WEEKLY
     Dates: end: 2012
  3. CARBAMAZEPINE [Concomitant]
     Dosage: UNK
  4. FLUOXETINE HYDROCHLORIDE [Concomitant]
     Dosage: UNK
  5. LAMOTRIGINE [Concomitant]
     Dosage: UNK

REACTIONS (7)
  - Glaucoma [Unknown]
  - Malaise [Unknown]
  - Injection site warmth [Unknown]
  - Injection site erythema [Unknown]
  - Injection site reaction [Unknown]
  - Injection site swelling [Unknown]
  - Injection site pruritus [Unknown]
